FAERS Safety Report 11367928 (Version 1)
Quarter: 2015Q3

REPORT INFORMATION
  Report Type: Spontaneous
  Country: US (occurrence: US)
  Receive Date: 20150811
  Receipt Date: 20150811
  Transmission Date: 20151125
  Serious: No
  Sender: FDA-Public Use
  Company Number: US-ELI_LILLY_AND_COMPANY-US201203007359

PATIENT
  Age: 57 Year
  Sex: Male
  Weight: 108.39 kg

DRUGS (4)
  1. VYTORIN [Concomitant]
     Active Substance: EZETIMIBE\SIMVASTATIN
     Dosage: UNK, OTHER
  2. DEPO-MEDROL [Concomitant]
     Active Substance: METHYLPREDNISOLONE ACETATE
     Indication: HYPOGONADISM
     Dosage: UNK
     Dates: start: 201111
  3. AXIRON [Suspect]
     Active Substance: TESTOSTERONE
     Indication: TESTICULAR DISORDER
     Dosage: 90 MG, UNK
     Dates: start: 201112, end: 20120315
  4. COUMADIN [Concomitant]
     Active Substance: WARFARIN SODIUM
     Indication: THROMBOPHLEBITIS
     Dosage: UNK, UNKNOWN

REACTIONS (2)
  - Acne [Recovered/Resolved]
  - Blood testosterone decreased [Recovered/Resolved]
